FAERS Safety Report 10308804 (Version 1)
Quarter: 2014Q3

REPORT INFORMATION
  Report Type: Spontaneous
  Country: US (occurrence: US)
  Receive Date: 20140716
  Receipt Date: 20140716
  Transmission Date: 20150326
  Serious: Yes (Hospitalization)
  Sender: FDA-Public Use
  Company Number: US-BRISTOL-MYERS SQUIBB COMPANY-21182233

PATIENT
  Age: 57 Year
  Sex: Female
  Weight: 86.17 kg

DRUGS (5)
  1. BYETTA [Suspect]
     Active Substance: EXENATIDE
     Indication: TYPE 2 DIABETES MELLITUS
     Dosage: INITIALLY 5 MCG
  2. METFORMIN HCL XR [Suspect]
     Active Substance: METFORMIN HYDROCHLORIDE
     Route: 048
     Dates: end: 201405
  3. JANUMET [Suspect]
     Active Substance: METFORMIN HYDROCHLORIDE\SITAGLIPTIN PHOSPHATE
     Dosage: 1DF=100/1000MG
     Route: 048
     Dates: start: 201405
  4. LANTUS [Concomitant]
     Active Substance: INSULIN GLARGINE
  5. INSULIN [Concomitant]
     Active Substance: INSULIN NOS
     Dosage: INJECTION?1DF=5-20 UNITS
     Route: 058
     Dates: start: 20140626

REACTIONS (2)
  - Nerve compression [Not Recovered/Not Resolved]
  - Blood glucose increased [Not Recovered/Not Resolved]

NARRATIVE: CASE EVENT DATE: 201405
